FAERS Safety Report 7288344-X (Version None)
Quarter: 2011Q1

REPORT INFORMATION
  Report Type: 
  Country: None (occurrence: None)
  Receive Date: 20110211
  Receipt Date: 20110203
  Transmission Date: 20110831
  Serious: Yes (Other)
  Sender: FDA-Public Use
  Company Number: JP-ROCHE-756490

PATIENT
  Age: 17 Year
  Sex: Female

DRUGS (3)
  1. CELLCEPT [Suspect]
     Indication: NEPHROTIC SYNDROME
     Dosage: DOSAGE IS UNCERTAIN.
     Route: 048
  2. PREDNISOLONE [Concomitant]
  3. CYCLOSPORINE [Concomitant]
     Dosage: DOSAGE IS UNCERTAIN

REACTIONS (3)
  - SEPSIS [None]
  - RENAL FAILURE ACUTE [None]
  - FOCAL SEGMENTAL GLOMERULOSCLEROSIS [None]
